FAERS Safety Report 8170396-6 (Version None)
Quarter: 2012Q1

REPORT INFORMATION
  Report Type: 
  Country: None (occurrence: None)
  Receive Date: 20120228
  Receipt Date: 20120217
  Transmission Date: 20120608
  Serious: Yes (Other)
  Sender: FDA-Public Use
  Company Number: US-BAYER-2011-112507

PATIENT
  Age: 51 Year
  Sex: Female
  Weight: 54 kg

DRUGS (3)
  1. CLIMARA PRO [Suspect]
     Indication: HORMONE REPLACEMENT THERAPY
     Dosage: UNK
     Route: 062
     Dates: start: 20110323, end: 20110326
  2. CLIMARA PRO [Suspect]
     Indication: MENOPAUSE
  3. CLIMARA PRO [Suspect]
     Indication: MIGRAINE

REACTIONS (4)
  - MUSCLE SPASMS [None]
  - TINNITUS [None]
  - CHEST PAIN [None]
  - PARAESTHESIA [None]
